FAERS Safety Report 8501798-3 (Version None)
Quarter: 2012Q3

REPORT INFORMATION
  Report Type: 
  Country: None (occurrence: None)
  Receive Date: 20120705
  Receipt Date: 20120705
  Transmission Date: 20120928
  Serious: Yes (Other)
  Sender: FDA-Public Use
  Company Number: None

PATIENT
  Age: 42 Year
  Sex: Male
  Weight: 139.2543 kg

DRUGS (2)
  1. JANUVIA [Suspect]
     Indication: IMPAIRED FASTING GLUCOSE
     Dosage: ONE DAILY PO
     Route: 048
     Dates: start: 20120605, end: 20120622
  2. JANUVIA [Suspect]
     Indication: HYPERGLYCAEMIA
     Dosage: ONE DAILY PO
     Route: 048
     Dates: start: 20120605, end: 20120622

REACTIONS (1)
  - MIGRAINE [None]
